FAERS Safety Report 23831475 (Version 2)
Quarter: 2024Q2

REPORT INFORMATION
  Report Type: Spontaneous
  Country: US (occurrence: US)
  Receive Date: 20240508
  Receipt Date: 20240612
  Transmission Date: 20240716
  Serious: No
  Sender: FDA-Public Use
  Company Number: US-JNJFOC-20240486317

PATIENT

DRUGS (1)
  1. CONCERTA [Suspect]
     Active Substance: METHYLPHENIDATE HYDROCHLORIDE
     Indication: Product used for unknown indication
     Dosage: NDC 50458-585-01
     Route: 065

REACTIONS (4)
  - Therapeutic product effect decreased [Unknown]
  - Headache [Unknown]
  - Urticaria [Unknown]
  - Product substitution issue [Unknown]
